FAERS Safety Report 11012607 (Version 1)
Quarter: 2015Q2

REPORT INFORMATION
  Report Type: Spontaneous
  Country: US (occurrence: None)
  Receive Date: 20150410
  Receipt Date: 20150410
  Transmission Date: 20150821
  Serious: No
  Sender: FDA-Public Use
  Company Number: None

PATIENT
  Sex: Female

DRUGS (1)
  1. CELECOXIB. [Suspect]
     Active Substance: CELECOXIB
     Indication: ARTHRALGIA
     Dosage: 1 PILL ?TWICE DAILY?TAKE BY MOUTH
     Route: 048

REACTIONS (2)
  - Pain [None]
  - Product substitution issue [None]

NARRATIVE: CASE EVENT DATE: 20150409
